FAERS Safety Report 9352389 (Version 1)
Quarter: 2013Q2

REPORT INFORMATION
  Report Type: Spontaneous
  Country: JP (occurrence: JP)
  Receive Date: 20130617
  Receipt Date: 20130617
  Transmission Date: 20140414
  Serious: Yes (Other)
  Sender: FDA-Public Use
  Company Number: JP-ELI_LILLY_AND_COMPANY-JP201110005114

PATIENT
  Age: 82 Year
  Sex: Female

DRUGS (2)
  1. FORTEO [Suspect]
     Dosage: UNK
     Route: 058
     Dates: start: 201109
  2. FORTEO [Suspect]
     Dosage: UNK
     Route: 058

REACTIONS (5)
  - Cataract [Unknown]
  - Nasopharyngitis [Recovered/Resolved]
  - Urine odour abnormal [Unknown]
  - Expired drug administered [Unknown]
  - Nausea [Not Recovered/Not Resolved]
